FAERS Safety Report 14636439 (Version 1)
Quarter: 2018Q1

REPORT INFORMATION
  Report Type: Report from Study
  Country: US (occurrence: US)
  Receive Date: 20180314
  Receipt Date: 20180314
  Transmission Date: 20180509
  Serious: Yes (Other)
  Sender: FDA-Public Use
  Company Number: US-GILEAD-2018-0319937

PATIENT
  Age: 51 Year
  Sex: Female
  Weight: 74.38 kg

DRUGS (20)
  1. CELEBREX [Concomitant]
     Active Substance: CELECOXIB
  2. SILDENAFIL. [Concomitant]
     Active Substance: SILDENAFIL
  3. AMBRISENTAN [Suspect]
     Active Substance: AMBRISENTAN
     Indication: PRODUCT USED FOR UNKNOWN INDICATION
     Dosage: 5 MG, UNK
     Route: 065
     Dates: start: 20180119
  4. HYDROCODONE [Concomitant]
     Active Substance: HYDROCODONE
  5. AMBRISENTAN [Suspect]
     Active Substance: AMBRISENTAN
     Dosage: 10 UNK, UNK
     Route: 065
  6. ORENITRAM [Suspect]
     Active Substance: TREPROSTINIL
     Dosage: 0.125 MG, UNK
     Route: 065
  7. TRAMADOL. [Concomitant]
     Active Substance: TRAMADOL
  8. OXYGEN. [Concomitant]
     Active Substance: OXYGEN
  9. ORENITRAM [Suspect]
     Active Substance: TREPROSTINIL
     Dosage: UNK
     Route: 048
  10. METOPROLOL. [Concomitant]
     Active Substance: METOPROLOL
  11. ORENITRAM [Suspect]
     Active Substance: TREPROSTINIL
     Dosage: 0.75 MG, TID
     Route: 048
     Dates: start: 20171215
  12. ORENITRAM [Suspect]
     Active Substance: TREPROSTINIL
     Dosage: UNK
     Route: 048
  13. ORENITRAM [Suspect]
     Active Substance: TREPROSTINIL
     Indication: PULMONARY ARTERIAL HYPERTENSION
     Dosage: 0.25 MG, BID
     Route: 048
     Dates: start: 2017
  14. ORENITRAM [Suspect]
     Active Substance: TREPROSTINIL
     Dosage: 1 MG, TID
     Route: 048
  15. ELIQUIS [Concomitant]
     Active Substance: APIXABAN
  16. KLOR-CON [Concomitant]
     Active Substance: POTASSIUM CHLORIDE
  17. MONTELUKAST [Concomitant]
     Active Substance: MONTELUKAST SODIUM
  18. METOLAZONE. [Concomitant]
     Active Substance: METOLAZONE
  19. SILDENAFIL CITRATE. [Concomitant]
     Active Substance: SILDENAFIL CITRATE
  20. LYRICA [Concomitant]
     Active Substance: PREGABALIN

REACTIONS (14)
  - Sinus congestion [Unknown]
  - Pain in extremity [Unknown]
  - Epistaxis [Unknown]
  - Nasal congestion [Unknown]
  - Muscle spasms [Unknown]
  - Syncope [Unknown]
  - Nasal dryness [Unknown]
  - Insomnia [Unknown]
  - Weight increased [Unknown]
  - Oedema peripheral [Unknown]
  - Fatigue [Unknown]
  - Sinus disorder [Unknown]
  - Nausea [Unknown]
  - Headache [Recovering/Resolving]

NARRATIVE: CASE EVENT DATE: 2017
